FAERS Safety Report 4825491-3 (Version None)
Quarter: 2005Q4

REPORT INFORMATION
  Report Type: 
  Country: None (occurrence: None)
  Receive Date: 20051111
  Receipt Date: 20050504
  Transmission Date: 20060501
  Serious: No
  Sender: FDA-Public Use
  Company Number: US-GLAXOSMITHKLINE-A0557315A

PATIENT
  Age: 27 Year
  Sex: Female

DRUGS (1)
  1. TRIZIVIR [Suspect]
     Indication: PROPHYLAXIS
     Route: 048
     Dates: start: 20050421

REACTIONS (1)
  - PYREXIA [None]
